FAERS Safety Report 23418568 (Version 1)
Quarter: 2024Q1

REPORT INFORMATION
  Report Type: Other
  Country: US (occurrence: US)
  Receive Date: 20240118
  Receipt Date: 20240118
  Transmission Date: 20240410
  Serious: No
  Sender: FDA-Public Use
  Company Number: US-UROVANT SCIENCES GMBH-202309-URV-001919

PATIENT
  Sex: Female

DRUGS (2)
  1. GEMTESA [Suspect]
     Active Substance: VIBEGRON
     Indication: Hypertonic bladder
     Dosage: UNK
     Route: 048
  2. TROSPIUM [Suspect]
     Active Substance: TROSPIUM
     Indication: Hypertonic bladder
     Dosage: UNK
     Route: 065
     Dates: start: 20230927

REACTIONS (2)
  - Inability to afford medication [Unknown]
  - Dry mouth [Unknown]

NARRATIVE: CASE EVENT DATE: 20230927
